FAERS Safety Report 4953627-2 (Version None)
Quarter: 2006Q1

REPORT INFORMATION
  Report Type: 
  Country: None (occurrence: None)
  Receive Date: 20060324
  Receipt Date: 20051118
  Transmission Date: 20060701
  Serious: Yes (Hospitalization)
  Sender: FDA-Public Use
  Company Number: US-MERCK-0511USA03375

PATIENT
  Age: 75 Year
  Sex: Male
  Weight: 87 kg

DRUGS (2)
  1. VIOXX [Suspect]
     Indication: ARTHRITIS
     Route: 048
     Dates: start: 20000901, end: 20021013
  2. VIOXX [Suspect]
     Route: 048
     Dates: start: 20000901, end: 20021013

REACTIONS (2)
  - ARTHROPATHY [None]
  - DEEP VEIN THROMBOSIS [None]
